FAERS Safety Report 8177209-7 (Version None)
Quarter: 2012Q1

REPORT INFORMATION
  Report Type: 
  Country: None (occurrence: None)
  Receive Date: 20120301
  Receipt Date: 20120224
  Transmission Date: 20120608
  Serious: Yes (Other)
  Sender: FDA-Public Use
  Company Number: US-JNJFOC-20120213210

PATIENT
  Age: 49 Year
  Sex: Female
  Weight: 49.9 kg

DRUGS (1)
  1. XARELTO [Suspect]
     Indication: COAGULOPATHY
     Route: 048
     Dates: start: 20111211, end: 20111214

REACTIONS (2)
  - NAUSEA [None]
  - HEADACHE [None]
